FAERS Safety Report 7545115-4 (Version None)
Quarter: 2011Q2

REPORT INFORMATION
  Report Type: 
  Country: None (occurrence: None)
  Receive Date: 20110610
  Receipt Date: 20110610
  Transmission Date: 20111010
  Serious: No
  Sender: FDA-Public Use
  Company Number: None

PATIENT
  Sex: Female
  Weight: 75.7507 kg

DRUGS (1)
  1. ATENOLOL [Suspect]
     Indication: HYPERTENSION
     Dosage: 25MG 1 X DAY MOUTH
     Route: 048
     Dates: start: 20110321

REACTIONS (5)
  - LIP PAIN [None]
  - BURNING SENSATION [None]
  - LIP DRY [None]
  - DRUG HYPERSENSITIVITY [None]
  - LIP DISCOLOURATION [None]
